FAERS Safety Report 13716567 (Version 3)
Quarter: 2018Q3

REPORT INFORMATION
  Report Type: Report from Study
  Country: BR (occurrence: BR)
  Receive Date: 20170705
  Receipt Date: 20180815
  Transmission Date: 20181010
  Serious: Yes (Hospitalization, Other)
  Sender: FDA-Public Use
  Company Number: PHHY2015BR120702

PATIENT
  Sex: Female
  Weight: 50 kg

DRUGS (3)
  1. RANITIDINE. [Concomitant]
     Active Substance: RANITIDINE
     Indication: ABDOMINAL DISCOMFORT
     Dosage: UNK
     Route: 065
  2. DEPURA [Concomitant]
     Active Substance: CHOLECALCIFEROL
     Indication: PRODUCT USED FOR UNKNOWN INDICATION
     Dosage: 10 GTT, QD
     Route: 065
  3. EXJADE [Suspect]
     Active Substance: DEFERASIROX
     Indication: THALASSAEMIA
     Dosage: 4 TABLETS OF 500 MG (40 MG/KG/DAY), QHS
     Route: 048

REACTIONS (15)
  - Pain [Not Recovered/Not Resolved]
  - Gastritis [Not Recovered/Not Resolved]
  - Product solubility abnormal [Unknown]
  - Crystal urine [Not Recovered/Not Resolved]
  - Nephrolithiasis [Recovering/Resolving]
  - Serum ferritin increased [Not Recovered/Not Resolved]
  - Dysgeusia [Unknown]
  - Nausea [Unknown]
  - Diarrhoea [Unknown]
  - Dyspepsia [Not Recovered/Not Resolved]
  - Abdominal discomfort [Unknown]
  - Malaise [Not Recovered/Not Resolved]
  - Gastrooesophageal reflux disease [Not Recovered/Not Resolved]
  - Abdominal pain [Not Recovered/Not Resolved]
  - Condition aggravated [Not Recovered/Not Resolved]
